FAERS Safety Report 20324761 (Version 2)
Quarter: 2022Q4

REPORT INFORMATION
  Report Type: Spontaneous
  Country: US (occurrence: US)
  Receive Date: 20220111
  Receipt Date: 20221104
  Transmission Date: 20230113
  Serious: No
  Sender: FDA-Public Use
  Company Number: US-MYOVANT SCIENCES GMBH-2021MYSCI1100164

PATIENT
  Sex: Male

DRUGS (2)
  1. ORGOVYX [Suspect]
     Active Substance: RELUGOLIX
     Indication: Prostate cancer
     Dosage: 360 MILLIGRAM, ONE TIME DOSE
     Route: 048
     Dates: start: 20210823, end: 20210823
  2. ORGOVYX [Suspect]
     Active Substance: RELUGOLIX
     Dosage: 120 MILLIGRAM, QD
     Route: 048
     Dates: start: 20210824

REACTIONS (11)
  - Muscular weakness [Not Recovered/Not Resolved]
  - Dizziness [Not Recovered/Not Resolved]
  - Tendonitis [Unknown]
  - Fat redistribution [Unknown]
  - Vision blurred [Unknown]
  - Limb discomfort [Unknown]
  - Myalgia [Unknown]
  - Gynaecomastia [Unknown]
  - Hot flush [Unknown]
  - Fatigue [Unknown]
  - Exposure to toxic agent [Unknown]
